FAERS Safety Report 26094482 (Version 1)
Quarter: 2025Q4

REPORT INFORMATION
  Report Type: Spontaneous
  Country: US (occurrence: US)
  Receive Date: 20251126
  Receipt Date: 20251126
  Transmission Date: 20260118
  Serious: No
  Sender: BRISTOL-MYERS SQUIBB COMPANY
  Company Number: US-BRISTOL-MYERS SQUIBB COMPANY-2025-159957

PATIENT
  Age: 60 Year
  Sex: Female
  Weight: 95.3 kg

DRUGS (1)
  1. ORENCIA [Suspect]
     Active Substance: ABATACEPT
     Indication: Osteoarthritis
     Dosage: ROUTE: UNDER THE SKIN
     Dates: start: 202507

REACTIONS (2)
  - Device failure [Unknown]
  - Off label use [Unknown]

NARRATIVE: CASE EVENT DATE: 20251125
